FAERS Safety Report 6866519-9 (Version None)
Quarter: 2010Q2

REPORT INFORMATION
  Report Type: 
  Country: None (occurrence: None)
  Receive Date: 20100601
  Receipt Date: 20100115
  Transmission Date: 20101027
  Serious: Yes (Other)
  Sender: FDA-Public Use
  Company Number: WAES 1001USA01634

PATIENT
  Age: 61 Year
  Sex: Female

DRUGS (1)
  1. FOSAMAX PLUS D [Suspect]
     Indication: OSTEOPENIA
     Dosage: 70 MG/2800 IU/WKY/PO
     Route: 048
     Dates: start: 20070101, end: 20091225

REACTIONS (2)
  - OSTEONECROSIS [None]
  - PAIN IN JAW [None]
